FAERS Safety Report 17713342 (Version 1)
Quarter: 2020Q2

REPORT INFORMATION
  Report Type: Spontaneous
  Country: FR (occurrence: FR)
  Receive Date: 20200427
  Receipt Date: 20200427
  Transmission Date: 20200714
  Serious: Yes (Hospitalization)
  Sender: FDA-Public Use
  Company Number: FR-ELI_LILLY_AND_COMPANY-FR202004005243

PATIENT
  Age: 87 Year

DRUGS (1)
  1. ABASAGLAR [Suspect]
     Active Substance: INSULIN GLARGINE
     Indication: PRODUCT USED FOR UNKNOWN INDICATION
     Dosage: 100 INTERNATIONAL UNIT, UNKNOWN
     Route: 058
     Dates: start: 20200401, end: 20200401

REACTIONS (3)
  - Hypoglycaemia [Recovered/Resolved]
  - Incorrect dose administered [Recovered/Resolved]
  - Product administration error [Recovered/Resolved]

NARRATIVE: CASE EVENT DATE: 20200401
